FAERS Safety Report 11875748 (Version 2)
Quarter: 2016Q1

REPORT INFORMATION
  Report Type: Report from Study
  Country: JP (occurrence: JP)
  Receive Date: 20151229
  Receipt Date: 20160119
  Transmission Date: 20160526
  Serious: Yes (Hospitalization, Disabling)
  Sender: FDA-Public Use
  Company Number: JP-ROCHE-1685559

PATIENT
  Age: 42 Year
  Sex: Female
  Weight: 62 kg

DRUGS (13)
  1. GRANISETRON [Concomitant]
     Active Substance: GRANISETRON
     Dosage: DOSAGE IS UNCERTAIN.
     Route: 065
     Dates: start: 20150313
  2. DERMOVATE [Concomitant]
     Active Substance: CLOBETASOL
     Indication: RASH MACULO-PAPULAR
     Dosage: PROPER QUANTITY
     Route: 003
     Dates: start: 20151221
  3. TRASTUZUMAB [Suspect]
     Active Substance: TRASTUZUMAB
     Indication: BREAST CANCER
     Route: 041
     Dates: start: 20150403
  4. DOCETAXEL. [Suspect]
     Active Substance: DOCETAXEL
     Indication: BREAST CANCER
     Route: 041
     Dates: start: 20150313, end: 20150605
  5. GEBEN CREAM [Concomitant]
     Dosage: DOSAGE IS UNCERTAIN.
     Route: 003
  6. SOLU-CORTEF [Concomitant]
     Active Substance: HYDROCORTISONE SODIUM SUCCINATE
     Dosage: DOSAGE IS UNCERTAIN.
     Route: 065
     Dates: start: 20150313, end: 20150313
  7. PERTUZUMAB [Suspect]
     Active Substance: PERTUZUMAB
     Indication: BREAST CANCER
     Route: 041
     Dates: start: 20150403
  8. DEXART [Concomitant]
     Active Substance: DEXAMETHASONE SODIUM PHOSPHATE
     Dosage: DOSAGE IS UNCERTAIN.
     Route: 065
     Dates: start: 20150313
  9. DOCETAXEL. [Suspect]
     Active Substance: DOCETAXEL
     Indication: BREAST CANCER
     Route: 041
     Dates: start: 20150626
  10. RESTAMIN [Concomitant]
     Active Substance: DIPHENHYDRAMINE
     Dosage: DOSAGE IS UNCERTAIN.
     Route: 065
     Dates: start: 20150611, end: 20150613
  11. TRASTUZUMAB [Suspect]
     Active Substance: TRASTUZUMAB
     Indication: BREAST CANCER
     Route: 041
     Dates: start: 20150313, end: 20150313
  12. PERTUZUMAB [Suspect]
     Active Substance: PERTUZUMAB
     Indication: BREAST CANCER
     Route: 041
     Dates: start: 20150313, end: 20150313
  13. TALION (JAPAN) [Concomitant]
     Active Substance: BEPOTASTINE
     Indication: RASH MACULO-PAPULAR
     Route: 048
     Dates: start: 20151221

REACTIONS (1)
  - Colon cancer [Not Recovered/Not Resolved]

NARRATIVE: CASE EVENT DATE: 20151027
